FAERS Safety Report 24956351 (Version 3)
Quarter: 2025Q2

REPORT INFORMATION
  Report Type: Report from Study
  Country: US (occurrence: US)
  Receive Date: 20250211
  Receipt Date: 20250513
  Transmission Date: 20250716
  Serious: Yes (Hospitalization, Other)
  Sender: ABBVIE
  Company Number: US-ABBVIE-6122187

PATIENT
  Age: 78 Year
  Sex: Female

DRUGS (3)
  1. RINVOQ [Suspect]
     Active Substance: UPADACITINIB
     Indication: Colitis ulcerative
     Route: 048
     Dates: start: 20240307
  2. RINVOQ [Suspect]
     Active Substance: UPADACITINIB
     Indication: Colitis ulcerative
     Route: 048
  3. RINVOQ [Suspect]
     Active Substance: UPADACITINIB
     Indication: Colitis ulcerative
     Route: 048

REACTIONS (11)
  - Neoplasm malignant [Not Recovered/Not Resolved]
  - Inflammatory marker increased [Unknown]
  - Pain in extremity [Not Recovered/Not Resolved]
  - Blood cholesterol increased [Unknown]
  - Abdominal pain upper [Recovering/Resolving]
  - Diarrhoea [Not Recovered/Not Resolved]
  - Large intestine polyp [Unknown]
  - Loss of consciousness [Recovering/Resolving]
  - Back injury [Unknown]
  - Limb injury [Unknown]
  - Dehydration [Unknown]

NARRATIVE: CASE EVENT DATE: 20250301
